FAERS Safety Report 4974308-5 (Version None)
Quarter: 2006Q2

REPORT INFORMATION
  Report Type: 
  Country: None (occurrence: None)
  Receive Date: 20060417
  Receipt Date: 20051003
  Transmission Date: 20061013
  Serious: Yes (Hospitalization)
  Sender: FDA-Public Use
  Company Number: US-MERCK-0510USA02883

PATIENT
  Age: 79 Year
  Sex: Male
  Weight: 81 kg

DRUGS (3)
  1. VIOXX [Suspect]
     Indication: ARTHRALGIA
     Route: 048
     Dates: start: 20000914, end: 20031001
  2. VIOXX [Suspect]
     Indication: BACK PAIN
     Route: 048
     Dates: start: 20000914, end: 20031001
  3. BEXTRA [Suspect]
     Route: 065

REACTIONS (4)
  - DEPRESSION [None]
  - LIMB INJURY [None]
  - MYOCARDIAL INFARCTION [None]
  - NEPHROLITHIASIS [None]
